FAERS Safety Report 15732313 (Version 1)
Quarter: 2018Q4

REPORT INFORMATION
  Report Type: Spontaneous
  Country: FR (occurrence: FR)
  Receive Date: 20181217
  Receipt Date: 20181217
  Transmission Date: 20190205
  Serious: Yes (Other)
  Sender: FDA-Public Use
  Company Number: FR-MYLANLABS-2018M1092854

PATIENT
  Age: 63 Year
  Sex: Female
  Weight: 63 kg

DRUGS (6)
  1. PROPOFOL. [Suspect]
     Active Substance: PROPOFOL
     Indication: GENERAL ANAESTHESIA
     Dosage: 1 DOSAGE FORM, TOTAL
     Route: 041
     Dates: start: 20160914
  2. BROMURE DE ROCURONIUM [Suspect]
     Active Substance: ROCURONIUM BROMIDE
     Indication: GENERAL ANAESTHESIA
     Dosage: 1 DOSAGE FORM, TOTAL
     Route: 041
     Dates: start: 20160914
  3. SUFENTANIL [Suspect]
     Active Substance: SUFENTANIL
     Indication: GENERAL ANAESTHESIA
     Dosage: 1 DOSAGE FORM, TOTAL
     Route: 041
     Dates: start: 20160914
  4. KETOPROFENE                        /00321701/ [Suspect]
     Active Substance: KETOPROFEN
     Indication: PROCEDURAL PAIN
     Dosage: 1 DOSAGE FORM, TOTAL
     Route: 041
     Dates: start: 20160914
  5. NEFOPAM [Suspect]
     Active Substance: NEFOPAM
     Indication: PAIN
     Dosage: 1 DOSAGE FORM, TOTAL
     Route: 041
     Dates: start: 20160914
  6. ONDANSETRON [Suspect]
     Active Substance: ONDANSETRON
     Indication: VOMITING
     Dosage: 1 DOSAGE FORM, QD
     Route: 041
     Dates: start: 20160914

REACTIONS (1)
  - Anaphylactic shock [Recovered/Resolved]

NARRATIVE: CASE EVENT DATE: 20160914
